FAERS Safety Report 8471259-9 (Version None)
Quarter: 2012Q2

REPORT INFORMATION
  Report Type: 
  Country: None (occurrence: None)
  Receive Date: 20120627
  Receipt Date: 20120621
  Transmission Date: 20120825
  Serious: Yes (Hospitalization)
  Sender: FDA-Public Use
  Company Number: AT-TEVA-341652USA

PATIENT
  Sex: Female
  Weight: 58 kg

DRUGS (3)
  1. BORTEZOMIB [Suspect]
     Indication: MULTIPLE MYELOMA
     Dosage: DAY 1, 4, 8, 11/ 28 DAY CYCLE
     Route: 042
     Dates: start: 20110913, end: 20120503
  2. TREANDA [Suspect]
     Indication: MULTIPLE MYELOMA
     Dosage: (DAY 1, 4/ 28 DAY CYCLE
     Route: 042
     Dates: start: 20110913, end: 20120423
  3. DEXAMETHASONE [Suspect]
     Indication: MULTIPLE MYELOMA
     Dosage: DAY 1, 4, 8, 11/ 28 DAY CYCLE
     Route: 048
     Dates: start: 20110913, end: 20120503

REACTIONS (1)
  - HERPES ZOSTER [None]
